FAERS Safety Report 10396550 (Version 1)
Quarter: 2014Q3

REPORT INFORMATION
  Report Type: Spontaneous
  Country: US (occurrence: None)
  Receive Date: 20140818
  Receipt Date: 20140818
  Transmission Date: 20150326
  Serious: No
  Sender: FDA-Public Use
  Company Number: None

PATIENT
  Age: 47 Year
  Sex: Male

DRUGS (1)
  1. TEMOZOLOMIDE [Suspect]
     Active Substance: TEMOZOLOMIDE
     Indication: BRAIN NEOPLASM MALIGNANT
     Dosage: 420 MG, QD X5DAYS, PO
     Route: 048
     Dates: start: 20140205, end: 201404

REACTIONS (3)
  - Fatigue [None]
  - Quality of life decreased [None]
  - Headache [None]

NARRATIVE: CASE EVENT DATE: 201404
